FAERS Safety Report 13327835 (Version 1)
Quarter: 2017Q1

REPORT INFORMATION
  Report Type: Spontaneous
  Country: US (occurrence: US)
  Receive Date: 20170313
  Receipt Date: 20170313
  Transmission Date: 20170428
  Serious: No
  Sender: FDA-Public Use
  Company Number: US-JNJFOC-20170203740

PATIENT
  Age: 43 Year
  Sex: Female
  Weight: 97.52 kg

DRUGS (2)
  1. WOMENS ROGAINE UNSCENTED [Suspect]
     Active Substance: MINOXIDIL
     Indication: ALOPECIA
     Dosage: 1/2 OR MORE CAP
     Route: 061
     Dates: end: 20170202
  2. WOMENS ROGAINE UNSCENTED [Suspect]
     Active Substance: MINOXIDIL
     Indication: ALOPECIA
     Dosage: 1/2 OR MORE CAP
     Route: 061
     Dates: end: 20170202

REACTIONS (5)
  - Skin burning sensation [Recovering/Resolving]
  - Product use issue [Recovering/Resolving]
  - Skin irritation [Recovering/Resolving]
  - Rash erythematous [Recovering/Resolving]
  - Overdose [Recovering/Resolving]

NARRATIVE: CASE EVENT DATE: 20170201
